FAERS Safety Report 23273508 (Version 8)
Quarter: 2024Q1

REPORT INFORMATION
  Report Type: Spontaneous
  Country: PL (occurrence: PL)
  Receive Date: 20231207
  Receipt Date: 20240229
  Transmission Date: 20240410
  Serious: Yes (Hospitalization)
  Sender: FDA-Public Use
  Company Number: PL-RECORDATI-2023007954

PATIENT
  Age: 64 Year
  Sex: Male

DRUGS (22)
  1. OMEPRAZOLE [Suspect]
     Active Substance: OMEPRAZOLE
     Indication: Gastrooesophageal reflux disease
     Dosage: 40 MG, PER DAY
     Route: 048
  2. DAPAGLIFLOZIN [Concomitant]
     Active Substance: DAPAGLIFLOZIN
     Indication: Type 2 diabetes mellitus
     Dosage: 10 MG, QD
     Route: 065
  3. METFORMIN [Concomitant]
     Active Substance: METFORMIN HYDROCHLORIDE
     Indication: Type 2 diabetes mellitus
     Dosage: 1000 MG, QD
     Route: 065
  4. PANTOPRAZOLE [Concomitant]
     Active Substance: PANTOPRAZOLE
     Indication: Reflux gastritis
     Dosage: UNK
     Route: 065
  5. CIPROFLOXACIN [Interacting]
     Active Substance: CIPROFLOXACIN
     Indication: Urinary tract infection
     Dosage: 500 MG, 2X PER DAY
     Route: 048
  6. CIPROFLOXACIN [Interacting]
     Active Substance: CIPROFLOXACIN
     Indication: Type 2 diabetes mellitus
  7. DAPAGLIFLOZIN PROPANEDIOL [Interacting]
     Active Substance: DAPAGLIFLOZIN PROPANEDIOL
     Indication: Type 2 diabetes mellitus
     Dosage: 10 MILLIGRAM, QD
     Route: 048
  8. DEXKETOPROFEN [Interacting]
     Active Substance: DEXKETOPROFEN
     Indication: Arthralgia
     Dosage: 50 MG, 3X PER DAY
     Route: 048
  9. DEXKETOPROFEN [Interacting]
     Active Substance: DEXKETOPROFEN
     Indication: Pain
  10. METFORMIN HYDROCHLORIDE [Interacting]
     Active Substance: METFORMIN HYDROCHLORIDE
     Indication: Type 2 diabetes mellitus
     Dosage: 1000 MILLIGRAM, QD
     Route: 048
  11. METAMIZOLE [Interacting]
     Active Substance: METAMIZOLE
     Indication: Arthralgia
     Dosage: 1000 MG, 3X PER DAY
     Route: 048
  12. MIRTAZAPINE [Interacting]
     Active Substance: MIRTAZAPINE
     Indication: Depression
     Dosage: 15 MG/DAY AT BEDTIME
     Route: 065
  13. MIRTAZAPINE [Interacting]
     Active Substance: MIRTAZAPINE
     Indication: Insomnia
     Dosage: 15 MILLIGRAM, QD (AT NIGHT)/15 MILLIGRAM, QD EVENING
     Route: 065
  14. MIRTAZAPINE [Interacting]
     Active Substance: MIRTAZAPINE
     Indication: Depression
  15. OXYCODONE HYDROCHLORIDE [Interacting]
     Active Substance: OXYCODONE HYDROCHLORIDE
     Indication: Arthralgia
     Dosage: 20 MG, PER DAY, TITRATED DOSE
     Route: 040
  16. OXYCODONE HYDROCHLORIDE [Interacting]
     Active Substance: OXYCODONE HYDROCHLORIDE
     Indication: Pain
  17. PREGABALIN [Interacting]
     Active Substance: PREGABALIN
     Indication: Arthralgia
     Dosage: 75 MG, 2X PER DAY
     Route: 048
  18. PREGABALIN [Interacting]
     Active Substance: PREGABALIN
     Indication: Insomnia
  19. SERTRALINE HYDROCHLORIDE [Interacting]
     Active Substance: SERTRALINE HYDROCHLORIDE
     Indication: Depression
     Dosage: 50 MG, IN THE MORNING
     Route: 048
  20. SERTRALINE HYDROCHLORIDE [Interacting]
     Active Substance: SERTRALINE HYDROCHLORIDE
     Indication: Insomnia
     Dosage: 50 MG, QD (AT NIGHT)
     Route: 048
  21. ACETAMINOPHEN\TRAMADOL [Interacting]
     Active Substance: ACETAMINOPHEN\TRAMADOL
     Indication: Arthralgia
     Dosage: 75/650 MG, 3X PER DAY
     Route: 048
  22. ACETAMINOPHEN\TRAMADOL [Interacting]
     Active Substance: ACETAMINOPHEN\TRAMADOL
     Indication: Pain

REACTIONS (8)
  - Sedation [Recovered/Resolved]
  - Arthralgia [Recovered/Resolved]
  - Drug ineffective [Recovering/Resolving]
  - Drug interaction [Recovered/Resolved]
  - Contraindicated product administered [Unknown]
  - Labelled drug-drug interaction issue [Unknown]
  - Overdose [Recovered/Resolved]
  - Medication error [Unknown]
